FAERS Safety Report 23541477 (Version 2)
Quarter: 2024Q1

REPORT INFORMATION
  Report Type: Report from Study
  Country: CA (occurrence: CA)
  Receive Date: 20240219
  Receipt Date: 20240326
  Transmission Date: 20240410
  Serious: Yes (Other)
  Sender: FDA-Public Use
  Company Number: CA-ABBVIE-5644357

PATIENT
  Sex: Female

DRUGS (2)
  1. RINVOQ [Suspect]
     Active Substance: UPADACITINIB
     Indication: Dermatitis atopic
     Route: 048
     Dates: start: 20220214
  2. RINVOQ [Suspect]
     Active Substance: UPADACITINIB
     Indication: Dermatitis atopic
     Route: 048

REACTIONS (25)
  - Suicidal ideation [Unknown]
  - Septic shock [Unknown]
  - Adrenal disorder [Unknown]
  - Depression [Unknown]
  - Liver injury [Unknown]
  - Renal disorder [Unknown]
  - Immune system disorder [Unknown]
  - Blood pressure increased [Unknown]
  - Heart rate increased [Unknown]
  - COVID-19 [Unknown]
  - Urticaria [Unknown]
  - Abdominal pain upper [Unknown]
  - Illness [Unknown]
  - Eye swelling [Unknown]
  - Throat tightness [Unknown]
  - Unevaluable event [Unknown]
  - Eczema [Unknown]
  - Mental disorder [Unknown]
  - Anxiety [Unknown]
  - Wound [Unknown]
  - Nephrolithiasis [Unknown]
  - Topical steroid withdrawal reaction [Unknown]
  - Lip swelling [Unknown]
  - Infection [Unknown]
  - Nervousness [Unknown]

NARRATIVE: CASE EVENT DATE: 20220101
